FAERS Safety Report 5918441-X (Version None)
Quarter: 2008Q4

REPORT INFORMATION
  Report Type: 
  Country: None (occurrence: None)
  Receive Date: 20081015
  Receipt Date: 20081006
  Transmission Date: 20090506
  Serious: Yes (Hospitalization, Other)
  Sender: FDA-Public Use
  Company Number: US-CELGENEUS-163-21880-07081340

PATIENT
  Sex: Male

DRUGS (10)
  1. REVLIMID [Suspect]
     Route: 048
     Dates: start: 20070724, end: 20070904
  2. REVLIMID [Suspect]
     Route: 048
     Dates: start: 20070529, end: 20070619
  3. REVLIMID [Suspect]
     Route: 048
     Dates: start: 20070627, end: 20070716
  4. DEXAMETHASONE [Concomitant]
     Indication: MULTIPLE MYELOMA
  5. ZOLEDRONIC ACID [Concomitant]
     Indication: DRUG USE FOR UNKNOWN INDICATION
     Route: 065
     Dates: start: 20070103
  6. COMPAZINE [Concomitant]
     Indication: NAUSEA
     Route: 065
  7. KYTRIL [Concomitant]
     Indication: NAUSEA
     Route: 065
  8. MAGNESIUM CITRATE [Concomitant]
     Indication: CONSTIPATION
     Route: 065
  9. ZOCOR [Concomitant]
     Indication: DRUG USE FOR UNKNOWN INDICATION
     Route: 065
  10. DILAUDID [Concomitant]
     Route: 065

REACTIONS (17)
  - ASTHENIA [None]
  - BLOOD CREATININE INCREASED [None]
  - BLOOD POTASSIUM DECREASED [None]
  - BLOOD SODIUM DECREASED [None]
  - DECREASED APPETITE [None]
  - DEHYDRATION [None]
  - DIZZINESS [None]
  - FAILURE TO THRIVE [None]
  - HAEMOGLOBIN DECREASED [None]
  - MUSCLE SPASMS [None]
  - NAUSEA [None]
  - NEUROPATHY PERIPHERAL [None]
  - SYNCOPE [None]
  - THROMBOCYTOPENIA [None]
  - VOMITING [None]
  - WEIGHT DECREASED [None]
  - WHITE BLOOD CELL COUNT DECREASED [None]
